FAERS Safety Report 19300796 (Version 1)
Quarter: 2021Q2

REPORT INFORMATION
  Report Type: Spontaneous
  Country: US (occurrence: US)
  Receive Date: 20210525
  Receipt Date: 20210525
  Transmission Date: 20210717
  Serious: Yes (Life-Threatening, Hospitalization)
  Sender: FDA-Public Use
  Company Number: None

PATIENT
  Age: 54 Year
  Sex: Female
  Weight: 86 kg

DRUGS (3)
  1. ENOXAPARIN [Suspect]
     Active Substance: ENOXAPARIN
     Route: 058
  2. WARFARIN [Suspect]
     Active Substance: WARFARIN
     Indication: DEEP VEIN THROMBOSIS
     Route: 048
  3. DEXAMETHASONE 6 MG PO DAILY [Concomitant]
     Dates: start: 20210219

REACTIONS (3)
  - Haemorrhagic stroke [None]
  - International normalised ratio increased [None]
  - Hypertension [None]

NARRATIVE: CASE EVENT DATE: 20210226
